FAERS Safety Report 9301028 (Version 1)
Quarter: 2013Q2

REPORT INFORMATION
  Report Type: Spontaneous
  Country: US (occurrence: US)
  Receive Date: 20130521
  Receipt Date: 20130521
  Transmission Date: 20140414
  Serious: No
  Sender: FDA-Public Use
  Company Number: US-PFIZER INC-2013151254

PATIENT
  Age: 75 Year
  Sex: Female

DRUGS (5)
  1. FLAGYL [Suspect]
     Dosage: UNK
  2. TETRACYCLINE HCL [Suspect]
     Dosage: UNK
  3. ERYTHROMYCIN [Suspect]
     Dosage: UNK
  4. LEVAQUIN [Suspect]
     Dosage: UNK
  5. AVELOX [Suspect]
     Dosage: UNK

REACTIONS (1)
  - Drug hypersensitivity [Unknown]
